FAERS Safety Report 6879465-1 (Version None)
Quarter: 2010Q3

REPORT INFORMATION
  Report Type: 
  Country: None (occurrence: None)
  Receive Date: 20100728
  Receipt Date: 20090506
  Transmission Date: 20110219
  Serious: No
  Sender: FDA-Public Use
  Company Number: US-PFIZER INC-2009170040

PATIENT
  Sex: Female

DRUGS (7)
  1. CHANTIX [Suspect]
     Dosage: 1 MG, 2X/DAY
  2. ACETYLSALICYLIC ACID [Concomitant]
     Dosage: UNK
  3. VITAMINS [Concomitant]
     Dosage: UNK
  4. VALSARTAN [Concomitant]
     Dosage: UNK
  5. LEVOTHYROXINE [Concomitant]
     Dosage: UNK
  6. SIMVASTATIN [Concomitant]
     Dosage: UNK
  7. METFORMIN HYDROCHLORIDE/SITAGLIPTIN [Concomitant]
     Indication: DIABETES MELLITUS
     Dosage: UNK

REACTIONS (3)
  - BALANCE DISORDER [None]
  - DIZZINESS [None]
  - NERVOUSNESS [None]
